FAERS Safety Report 16645134 (Version 1)
Quarter: 2019Q3

REPORT INFORMATION
  Report Type: Spontaneous
  Country: NL (occurrence: NL)
  Receive Date: 20190729
  Receipt Date: 20190729
  Transmission Date: 20191004
  Serious: Yes (Death)
  Sender: FDA-Public Use
  Company Number: NL-BAUSCH-BL-2019-021385

PATIENT
  Age: 73 Year
  Sex: Male

DRUGS (8)
  1. MORPHINE [Suspect]
     Active Substance: MORPHINE
     Indication: PRODUCT USED FOR UNKNOWN INDICATION
     Dosage: 2 MILLIGRAM (18X BOLUS DURING 25 HOURS)
     Route: 041
  2. FENTANYL MYLAN [Interacting]
     Active Substance: FENTANYL
     Dosage: (1 X PER THREE DAYS), Q3D (25 MICROGRAM/HR)
     Route: 003
  3. FENTANYL MYLAN [Interacting]
     Active Substance: FENTANYL
     Indication: ANALGESIC THERAPY
     Dosage: (1 X PER THREE DAYS), Q3D (50 MICROGRAM/HOUR)
     Route: 003
  4. FENTANYL TRANSDERMAL SYSTEM [Concomitant]
     Active Substance: FENTANYL
     Indication: ANALGESIC THERAPY
     Dosage: 1 X PER THREE DAYS, Q3D (37.5 MICROGRAM PER HOUR) (PATCH)
     Route: 003
  5. ENZALUTAMIDE [Interacting]
     Active Substance: ENZALUTAMIDE
     Indication: HORMONE-REFRACTORY PROSTATE CANCER
     Dosage: UNK
     Route: 065
  6. DICLOFENAC [Suspect]
     Active Substance: DICLOFENAC
     Indication: PRODUCT USED FOR UNKNOWN INDICATION
     Dosage: 50 MILLIGRAM, QD (THREE TIMES)
     Route: 065
  7. MORPHINE [Suspect]
     Active Substance: MORPHINE
     Dosage: PCA PUMP
     Route: 041
  8. OXYCODON [Concomitant]
     Active Substance: OXYCODONE
     Indication: PRODUCT USED FOR UNKNOWN INDICATION
     Route: 065

REACTIONS (5)
  - Drug interaction [Unknown]
  - Spinal pain [Fatal]
  - Dizziness [Fatal]
  - Metastases to bone [Fatal]
  - Somnolence [Fatal]
